FAERS Safety Report 13194257 (Version 1)
Quarter: 2017Q1

REPORT INFORMATION
  Report Type: Spontaneous
  Country: US (occurrence: US)
  Receive Date: 20170207
  Receipt Date: 20170207
  Transmission Date: 20170428
  Serious: No
  Sender: FDA-Public Use
  Company Number: US-JAZZ-2016-US-022797

PATIENT
  Age: 57 Year
  Sex: Male

DRUGS (29)
  1. XYREM [Suspect]
     Active Substance: SODIUM OXYBATE
     Indication: NARCOLEPSY
     Dosage: 2.25 G, BID
     Route: 048
     Dates: start: 201608, end: 2016
  2. MUCINEX [Concomitant]
     Active Substance: GUAIFENESIN
  3. TYLENOL [Concomitant]
     Active Substance: ACETAMINOPHEN
  4. CALCIUM [Concomitant]
     Active Substance: CALCIUM
  5. VITAMIN D                          /00107901/ [Concomitant]
     Active Substance: ERGOCALCIFEROL
  6. MODAFIL [Concomitant]
  7. VERAPAMIL [Concomitant]
     Active Substance: VERAPAMIL HYDROCHLORIDE
  8. DEXTROAMPHETAMINE                  /00016601/ [Concomitant]
     Active Substance: DEXTROAMPHETAMINE
  9. FUROSEMIDE. [Concomitant]
     Active Substance: FUROSEMIDE
  10. ISOMETHEPTENE DICHLORAL APAP [Concomitant]
     Dosage: , PRN
  11. MULTIVITAMIN                       /00097801/ [Concomitant]
     Active Substance: VITAMINS
  12. PROAIR HFA [Concomitant]
     Active Substance: ALBUTEROL SULFATE
     Dosage: , PRN
     Route: 038
  13. LOTEMAX [Concomitant]
     Active Substance: LOTEPREDNOL ETABONATE
  14. TESTOSTERONE. [Concomitant]
     Active Substance: TESTOSTERONE
  15. ZYRTEC [Concomitant]
     Active Substance: CETIRIZINE HYDROCHLORIDE
  16. ASPIRIN                            /00002701/ [Concomitant]
     Active Substance: ASPIRIN
     Dosage: 81MG
  17. ATORVASTATIN [Concomitant]
     Active Substance: ATORVASTATIN
  18. IPRATROPIUM [Concomitant]
     Active Substance: IPRATROPIUM
     Route: 045
  19. KLOR-CON [Concomitant]
     Active Substance: POTASSIUM CHLORIDE
  20. TIMOLOL. [Concomitant]
     Active Substance: TIMOLOL
  21. XYREM [Suspect]
     Active Substance: SODIUM OXYBATE
     Dosage: DOSE ADJUSTMENT
     Route: 048
     Dates: start: 2016, end: 2016
  22. XYREM [Suspect]
     Active Substance: SODIUM OXYBATE
     Dosage: 4.5G, BID
     Route: 048
     Dates: start: 2016, end: 20161104
  23. LYRICA [Concomitant]
     Active Substance: PREGABALIN
  24. SYMBICORT [Concomitant]
     Active Substance: BUDESONIDE\FORMOTEROL FUMARATE DIHYDRATE
     Route: 038
  25. AZELASTINE [Concomitant]
     Active Substance: AZELASTINE
  26. PSEUDOEPHEDRINE [Concomitant]
     Active Substance: PSEUDOEPHEDRINE
  27. ZOLPIDEM TARTATE [Concomitant]
     Active Substance: ZOLPIDEM TARTRATE
  28. ENALAPRIL MALEATE. [Concomitant]
     Active Substance: ENALAPRIL MALEATE
  29. TRAZODONE [Concomitant]
     Active Substance: TRAZODONE HYDROCHLORIDE

REACTIONS (3)
  - Nocturia [Unknown]
  - Nausea [Unknown]
  - Drug ineffective [Unknown]

NARRATIVE: CASE EVENT DATE: 201608
